FAERS Safety Report 4837048-9 (Version None)
Quarter: 2005Q4

REPORT INFORMATION
  Report Type: 
  Country: None (occurrence: None)
  Receive Date: 20051121
  Receipt Date: 20051121
  Transmission Date: 20060501
  Serious: Yes (Hospitalization)
  Sender: FDA-Public Use
  Company Number: None

PATIENT
  Age: 54 Year
  Sex: Male
  Weight: 120.1 kg

DRUGS (1)
  1. LISINOPRIL [Suspect]
     Indication: HYPERTENSION
     Dosage: 20 MG QD
     Dates: start: 20050823, end: 20050914

REACTIONS (4)
  - ANGIONEUROTIC OEDEMA [None]
  - FACE OEDEMA [None]
  - PHARYNGEAL OEDEMA [None]
  - SWELLING FACE [None]
